FAERS Safety Report 24888999 (Version 1)
Quarter: 2025Q1

REPORT INFORMATION
  Report Type: Spontaneous
  Country: US (occurrence: None)
  Receive Date: 20250124
  Receipt Date: 20250124
  Transmission Date: 20250409
  Serious: Yes (Hospitalization)
  Sender: FDA-CTU
  Company Number: None

PATIENT
  Sex: Female

DRUGS (3)
  1. GENGRAF [Suspect]
     Active Substance: CYCLOSPORINE
     Indication: Renal transplant
     Dosage: FREQUENCY : TWICE A DAY;?
     Route: 048
     Dates: start: 202212
  2. QELBREE [Suspect]
     Active Substance: VILOXAZINE HYDROCHLORIDE
  3. MYCOPHENOLATE VIOFETIL [Concomitant]

REACTIONS (8)
  - Headache [None]
  - Nausea [None]
  - Vomiting [None]
  - Somnolence [None]
  - Fatigue [None]
  - Blood creatinine increased [None]
  - Dehydration [None]
  - Therapy cessation [None]
